FAERS Safety Report 12067403 (Version 1)
Quarter: 2016Q1

REPORT INFORMATION
  Report Type: Spontaneous
  Country: US (occurrence: US)
  Receive Date: 20160211
  Receipt Date: 20160211
  Transmission Date: 20160526
  Serious: No
  Sender: FDA-Public Use
  Company Number: US-PERRIGO-15US000222

PATIENT
  Age: 1 Year
  Sex: Male
  Weight: 10.43 kg

DRUGS (4)
  1. IBUPROFEN. [Suspect]
     Active Substance: IBUPROFEN
     Indication: PYREXIA
     Dosage: 200 MG, SINGLE
     Route: 048
     Dates: start: 20150108, end: 20150108
  2. COUGH AND COLD PREPARATIONS [Concomitant]
     Active Substance: UNSPECIFIED INGREDIENT
     Indication: NASOPHARYNGITIS
     Dosage: UNK
     Route: 065
     Dates: start: 20150107
  3. ALBUTEROL                          /00139501/ [Concomitant]
     Active Substance: ALBUTEROL
     Indication: NASOPHARYNGITIS
     Dosage: UNK
     Route: 065
     Dates: start: 20150107
  4. IBUPROFEN. [Suspect]
     Active Substance: IBUPROFEN
     Dosage: 80 MG, PRN
     Route: 048
     Dates: start: 20150107

REACTIONS (3)
  - Accidental overdose [Recovered/Resolved]
  - Incorrect dose administered [Unknown]
  - No adverse event [Recovered/Resolved]

NARRATIVE: CASE EVENT DATE: 20150107
